FAERS Safety Report 4905963-3 (Version None)
Quarter: 2006Q1

REPORT INFORMATION
  Report Type: 
  Country: None (occurrence: None)
  Receive Date: 20060206
  Receipt Date: 20060124
  Transmission Date: 20060701
  Serious: Yes (Other)
  Sender: FDA-Public Use
  Company Number: 2006012777

PATIENT
  Sex: Female
  Weight: 71.2147 kg

DRUGS (3)
  1. CELEBREX [Suspect]
     Indication: ARTHRITIS
  2. NORVASC [Suspect]
     Indication: ANGINA PECTORIS
  3. NORVASC [Suspect]
     Indication: DYSPNOEA

REACTIONS (6)
  - ANGINA PECTORIS [None]
  - BONE NEOPLASM MALIGNANT [None]
  - DRUG EFFECT DECREASED [None]
  - DYSPNOEA [None]
  - HYPERTONIC BLADDER [None]
  - SWELLING [None]
